FAERS Safety Report 7372412-8 (Version None)
Quarter: 2011Q1

REPORT INFORMATION
  Report Type: 
  Country: None (occurrence: None)
  Receive Date: 20110324
  Receipt Date: 20100506
  Transmission Date: 20110831
  Serious: Yes (Other)
  Sender: FDA-Public Use
  Company Number: PHHY2010DE90836

PATIENT
  Sex: Female

DRUGS (1)
  1. EXTAVIA [Suspect]
     Route: 058
     Dates: start: 20100406

REACTIONS (8)
  - MULTIPLE SCLEROSIS RELAPSE [None]
  - WHITE BLOOD CELL COUNT DECREASED [None]
  - DIZZINESS [None]
  - SPINAL DISORDER [None]
  - INJECTION SITE REACTION [None]
  - HOT FLUSH [None]
  - LIMB DISCOMFORT [None]
  - INJECTION SITE DISCOLOURATION [None]
